FAERS Safety Report 9311683 (Version 1)
Quarter: 2013Q1

REPORT INFORMATION
  Report Type: Spontaneous
  Country: US (occurrence: None)
  Receive Date: 20130225
  Receipt Date: 20130225
  Transmission Date: 20140127
  Serious: Yes (Hospitalization)
  Sender: FDA-Public Use
  Company Number: 142971-1

PATIENT
  Age: 22 Year
  Sex: Male

DRUGS (1)
  1. DAUNORUBICIN HCL [Suspect]
     Indication: ACUTE MYELOID LEUKAEMIA
     Route: 042
     Dates: start: 20120713

REACTIONS (4)
  - Febrile neutropenia [None]
  - Pain [None]
  - Pancytopenia [None]
  - Lung infection [None]
